FAERS Safety Report 4342972-X (Version None)
Quarter: 2004Q2

REPORT INFORMATION
  Report Type: 
  Country: None (occurrence: None)
  Receive Date: 20040421
  Receipt Date: 20040408
  Transmission Date: 20050107
  Serious: Yes (Disabling)
  Sender: FDA-Public Use
  Company Number: US-MERCK-0404USA01075

PATIENT
  Age: 71 Year
  Sex: Male

DRUGS (2)
  1. [THERAPY UNSPECIFIED] [Concomitant]
     Route: 065
  2. COZAAR [Suspect]
     Indication: HYPERTENSION
     Route: 048
     Dates: start: 20000101

REACTIONS (7)
  - ARTHRALGIA [None]
  - BURNING SENSATION [None]
  - CARDIAC DISORDER [None]
  - CONFUSIONAL STATE [None]
  - JOINT STIFFNESS [None]
  - PAIN [None]
  - PARAESTHESIA [None]
